FAERS Safety Report 12521672 (Version 1)
Quarter: 2016Q3

REPORT INFORMATION
  Report Type: Report from Study
  Country: US (occurrence: US)
  Receive Date: 20160701
  Receipt Date: 20160701
  Transmission Date: 20161109
  Serious: Yes (Hospitalization, Other)
  Sender: FDA-Public Use
  Company Number: US-ABBVIE-16K-163-1660450-00

PATIENT
  Age: 46 Year
  Sex: Female

DRUGS (1)
  1. HUMIRA [Suspect]
     Active Substance: ADALIMUMAB
     Indication: RHEUMATOID ARTHRITIS
     Route: 058
     Dates: start: 20100629, end: 201603

REACTIONS (11)
  - Influenza [Recovered/Resolved]
  - Diarrhoea [Recovering/Resolving]
  - Decreased appetite [Recovering/Resolving]
  - Ear infection [Recovering/Resolving]
  - Cardiac failure [Not Recovered/Not Resolved]
  - Arthropod bite [Recovered/Resolved]
  - Nodule [Not Recovered/Not Resolved]
  - Chest discomfort [Recovering/Resolving]
  - Blood potassium decreased [Unknown]
  - Dehydration [Recovering/Resolving]
  - Otorrhoea [Recovered/Resolved]

NARRATIVE: CASE EVENT DATE: 2016
